FAERS Safety Report 8047828-7 (Version None)
Quarter: 2012Q1

REPORT INFORMATION
  Report Type: 
  Country: None (occurrence: None)
  Receive Date: 20120116
  Receipt Date: 20120105
  Transmission Date: 20120608
  Serious: Yes (Other)
  Sender: FDA-Public Use
  Company Number: PHHO2012GB000675

PATIENT
  Sex: Male
  Weight: 96.8 kg

DRUGS (9)
  1. POTASSIUM CHLORIDE [Concomitant]
     Dosage: 2 TABS
     Dates: start: 20110401
  2. EPLERENONE [Concomitant]
     Indication: CARDIAC FAILURE
     Dosage: 25 MG, QD
     Route: 048
     Dates: start: 20070101
  3. FUROSEMIDE [Concomitant]
     Indication: CARDIAC FAILURE
     Dosage: 80 MG, BID
     Route: 048
     Dates: start: 20070101
  4. ASPIRIN [Concomitant]
     Dosage: 75 MG, QD
     Route: 048
     Dates: start: 20070101
  5. ENALAPRIL MALEATE [Suspect]
     Indication: CARDIAC FAILURE
  6. BISOPROLOL FUMARATE [Concomitant]
     Indication: CARDIAC FAILURE
     Dosage: 10 MG, QD
     Route: 048
     Dates: start: 20070101
  7. SIMVASTATIN [Concomitant]
     Indication: BLOOD CHOLESTEROL
     Dosage: 40 MG, QD
     Route: 048
     Dates: start: 20070101
  8. ALISKIREN [Suspect]
     Indication: CARDIAC FAILURE
     Dosage: UNK
     Route: 048
     Dates: start: 20111118, end: 20120104
  9. WARFARIN SODIUM [Concomitant]
     Indication: INTRACARDIAC THROMBUS
     Dosage: AS PER INR

REACTIONS (1)
  - ATRIAL FLUTTER [None]
